FAERS Safety Report 8235000-7 (Version None)
Quarter: 2012Q1

REPORT INFORMATION
  Report Type: 
  Country: None (occurrence: None)
  Receive Date: 20120326
  Receipt Date: 20120319
  Transmission Date: 20120608
  Serious: Yes (Hospitalization, Other)
  Sender: FDA-Public Use
  Company Number: US-BAYER-2011-115416

PATIENT
  Age: 29 Year
  Sex: Female

DRUGS (4)
  1. ZYRTEC [Concomitant]
  2. PRILOSEC [Concomitant]
  3. YAZ [Suspect]
     Indication: CONTRACEPTION
     Dosage: UNK
     Dates: start: 20090601, end: 20090801
  4. FLONASE [Concomitant]
     Route: 045

REACTIONS (8)
  - DEPRESSION [None]
  - FEAR OF DEATH [None]
  - NERVOUSNESS [None]
  - CHOLECYSTITIS ACUTE [None]
  - CHOLECYSTECTOMY [None]
  - INJURY [None]
  - PAIN [None]
  - EMOTIONAL DISTRESS [None]
